FAERS Safety Report 9373319 (Version 2)
Quarter: 2013Q3

REPORT INFORMATION
  Report Type: Spontaneous
  Country: FR (occurrence: FR)
  Receive Date: 20130627
  Receipt Date: 20130912
  Transmission Date: 20140515
  Serious: Yes (Other)
  Sender: FDA-Public Use
  Company Number: FR-TEVA-415403ISR

PATIENT
  Sex: Female

DRUGS (1)
  1. FUROSEMIDE TEVA 40 MG [Suspect]
     Dates: end: 20130612

REACTIONS (1)
  - Pulmonary oedema [Recovered/Resolved]
